FAERS Safety Report 9847360 (Version 2)
Quarter: 2014Q1

REPORT INFORMATION
  Report Type: Report from Study
  Country: DE (occurrence: DE)
  Receive Date: 20140127
  Receipt Date: 20140127
  Transmission Date: 20141002
  Serious: Yes (Hospitalization)
  Sender: FDA-Public Use
  Company Number: DE-ONYX-2013-1613

PATIENT
  Age: 41 Year
  Sex: Male

DRUGS (11)
  1. CARFILZOMIB [Suspect]
     Indication: PLASMA CELL MYELOMA
     Route: 042
     Dates: start: 20130826, end: 20130826
  2. CARFILZOMIB [Suspect]
     Route: 042
     Dates: start: 20130827, end: 20130924
  3. CARFILZOMIB [Suspect]
     Route: 042
     Dates: start: 20131014
  4. DEXAMETHASONE [Suspect]
     Indication: PLASMA CELL MYELOMA
     Route: 048
     Dates: start: 20130827, end: 20130930
  5. DEXAMETHASONE [Suspect]
     Route: 048
     Dates: start: 20131014
  6. DEXAMETHASONE [Suspect]
     Route: 048
     Dates: start: 20130826, end: 20130826
  7. ACICLOVIR [Concomitant]
     Indication: PROPHYLAXIS
     Route: 048
     Dates: start: 20130826, end: 20130909
  8. ACICLOVIR [Concomitant]
     Route: 048
     Dates: start: 20130910
  9. PANTOPRAZOL [Concomitant]
     Indication: PROPHYLAXIS
     Route: 048
     Dates: start: 20130826
  10. NOVALGIN [Concomitant]
     Indication: PAIN
     Route: 048
     Dates: start: 20130628, end: 20130913
  11. RAMIPRIL [Concomitant]
     Indication: HYPERTENSION
     Route: 048
     Dates: start: 201003, end: 20130922

REACTIONS (1)
  - Albuminuria [Recovered/Resolved]
